FAERS Safety Report 9266233 (Version 2)
Quarter: 2013Q2

REPORT INFORMATION
  Report Type: Report from Study
  Country: US (occurrence: US)
  Receive Date: 20130502
  Receipt Date: 20130617
  Transmission Date: 20140414
  Serious: Yes (Hospitalization)
  Sender: FDA-Public Use
  Company Number: US-ROCHE-1212867

PATIENT
  Sex: Female

DRUGS (4)
  1. PEGASYS [Suspect]
     Indication: CHRONIC HEPATITIS C
     Route: 058
     Dates: start: 20130405
  2. RIBASPHERE [Suspect]
     Indication: CHRONIC HEPATITIS C
     Dosage: DIVIDED DOSES
     Route: 048
     Dates: start: 20130405
  3. INCIVEK [Suspect]
     Indication: CHRONIC HEPATITIS C
     Route: 065
     Dates: start: 20130405
  4. GLUCERNA [Concomitant]
     Indication: DIABETES MELLITUS

REACTIONS (9)
  - Lethargy [Unknown]
  - Blood sodium decreased [Unknown]
  - Headache [Recovering/Resolving]
  - Nausea [Unknown]
  - Influenza like illness [Unknown]
  - Weight decreased [Unknown]
  - Blood sodium increased [Unknown]
  - Memory impairment [Unknown]
  - Anaemia [Unknown]
